FAERS Safety Report 8551736-2 (Version None)
Quarter: 2012Q3

REPORT INFORMATION
  Report Type: 
  Country: None (occurrence: None)
  Receive Date: 20120723
  Receipt Date: 20120723
  Transmission Date: 20120928
  Serious: Yes (Disabling, Other)
  Sender: FDA-Public Use
  Company Number: None

PATIENT
  Sex: Male
  Weight: 77.1115 kg

DRUGS (1)
  1. LIVALO [Suspect]
     Indication: BLOOD CHOLESTEROL INCREASED
     Dosage: 2 MG  1/DAY PO
     Route: 048
     Dates: start: 20120425, end: 20120527

REACTIONS (9)
  - MYALGIA [None]
  - FALL [None]
  - ROTATOR CUFF SYNDROME [None]
  - ARTHRALGIA [None]
  - GAIT DISTURBANCE [None]
  - TENDON RUPTURE [None]
  - NO THERAPEUTIC RESPONSE [None]
  - INSOMNIA [None]
  - NEURALGIA [None]
